FAERS Safety Report 21125587 (Version 2)
Quarter: 2022Q3

REPORT INFORMATION
  Report Type: Spontaneous
  Country: US (occurrence: US)
  Receive Date: 20220725
  Receipt Date: 20220822
  Transmission Date: 20221026
  Serious: No
  Sender: FDA-Public Use
  Company Number: US-BRISTOL-MYERS SQUIBB COMPANY-2022-078719

PATIENT
  Age: 75 Year
  Sex: Male

DRUGS (2)
  1. POMALYST [Suspect]
     Active Substance: POMALIDOMIDE
     Indication: Vomiting
     Dosage: FREQUENCY-1 CAPSULE BY MOUTH DAILY FOR 7 DAYS ON, 7 DAYS OFF OF A 28 DAY CYCLE.
     Route: 048
     Dates: start: 20200422
  2. POMALYST [Suspect]
     Active Substance: POMALIDOMIDE
     Indication: Plasma cell myeloma

REACTIONS (2)
  - Laboratory test abnormal [Unknown]
  - Off label use [Unknown]
